FAERS Safety Report 8309462-0 (Version None)
Quarter: 2012Q2

REPORT INFORMATION
  Report Type: 
  Country: None (occurrence: None)
  Receive Date: 20120420
  Receipt Date: 20120411
  Transmission Date: 20120825
  Serious: Yes (Hospitalization, Other)
  Sender: FDA-Public Use
  Company Number: TPA2012A00526

PATIENT
  Age: 57 Year
  Sex: Male
  Weight: 171.4597 kg

DRUGS (20)
  1. FLOMAX [Concomitant]
  2. VYTORIN [Concomitant]
  3. ASPIRIN [Concomitant]
  4. NICOTINE [Concomitant]
  5. GLIMEPIRIDE [Concomitant]
  6. GLYBURIDE [Concomitant]
  7. NITROGLYCERIN [Concomitant]
  8. ACTOS [Suspect]
     Indication: DIABETES MELLITUS
     Dosage: 45 MG, PER ORAL
     Route: 048
     Dates: start: 20000101, end: 20111115
  9. FINASTERIDE [Concomitant]
  10. HYDROCHLOROTHIAZIDE [Concomitant]
  11. LANTUS [Concomitant]
  12. METOPROLOL TARTRATE [Concomitant]
  13. EPIPEN [Concomitant]
  14. FUROSEMIDE [Concomitant]
  15. CELECOXIB [Concomitant]
  16. ASPART INSULIN(INSULIN) [Concomitant]
  17. NOVOLOG [Concomitant]
  18. LUTEIN (XANTOFYL) [Concomitant]
  19. TAMSULOSIN HCL [Concomitant]
  20. MAGNESIUM HYDROXIDE TAB [Concomitant]

REACTIONS (6)
  - RENAL CELL CARCINOMA [None]
  - PROSTATITIS [None]
  - KIDNEY INFECTION [None]
  - SEPSIS [None]
  - DIARRHOEA [None]
  - CHEST PAIN [None]
